FAERS Safety Report 24883479 (Version 1)
Quarter: 2025Q1

REPORT INFORMATION
  Report Type: Spontaneous
  Country: US (occurrence: None)
  Receive Date: 20250124
  Receipt Date: 20250124
  Transmission Date: 20250408
  Serious: Yes (Death)
  Sender: FDA-CTU
  Company Number: None

PATIENT
  Age: 54 Year
  Sex: Male

DRUGS (2)
  1. EVEROLIMUS [Suspect]
     Active Substance: EVEROLIMUS
     Indication: Neoplasm malignant
     Dosage: 10MG 1 TIME A DAY BY MOUTH
     Route: 048
     Dates: start: 202410
  2. PAZOPANIB HYDROCHLORIDE [Suspect]
     Active Substance: PAZOPANIB HYDROCHLORIDE
     Indication: Neoplasm malignant
     Dosage: 800MG 1 TIME A DAY BY MOUTH
     Route: 048
     Dates: start: 202406

REACTIONS (1)
  - Death [None]

NARRATIVE: CASE EVENT DATE: 20250122
